FAERS Safety Report 4974836-2 (Version None)
Quarter: 2006Q1

REPORT INFORMATION
  Report Type: 
  Country: None (occurrence: None)
  Receive Date: 20060227
  Receipt Date: 20050315
  Transmission Date: 20060701
  Serious: Yes (Death)
  Sender: FDA-Public Use
  Company Number: 05P-163-0289994-00

PATIENT
  Age: 31 Year
  Sex: Male
  Weight: 170 kg

DRUGS (6)
  1. VICODIN [Suspect]
     Indication: PAIN
     Dosage: PER ORAL
     Route: 048
  2. ALPRAZOLAM [Suspect]
     Indication: PSYCHOTIC DISORDER
     Dates: start: 20040801
  3. OLANZAPINE [Concomitant]
  4. VALPROATE SODIUM [Concomitant]
  5. ZIPRASIDONE HCL [Concomitant]
  6. RISPERIDONE [Concomitant]

REACTIONS (1)
  - DRUG TOXICITY [None]
